FAERS Safety Report 9424232 (Version 2)
Quarter: 2014Q1

REPORT INFORMATION
  Report Type: Report from Study
  Country: JP (occurrence: JP)
  Receive Date: 20130729
  Receipt Date: 20140313
  Transmission Date: 20141002
  Serious: Yes (Other)
  Sender: FDA-Public Use
  Company Number: JP-JNJFOC-20130712720

PATIENT
  Age: 21 Year
  Sex: Male

DRUGS (8)
  1. PREZISTA [Suspect]
     Indication: HIV INFECTION
     Route: 048
     Dates: start: 20120409
  2. NORVIR [Suspect]
     Indication: HIV INFECTION
     Route: 048
     Dates: start: 20120409
  3. TRUVADA [Suspect]
     Indication: HIV INFECTION
     Route: 048
     Dates: start: 20120409
  4. ZITHROMAC [Concomitant]
     Indication: PROPHYLAXIS
     Route: 065
     Dates: start: 20120616, end: 20121029
  5. BAKTAR [Concomitant]
     Indication: PROPHYLAXIS
     Route: 048
     Dates: start: 20120105
  6. DIFLUCAN [Concomitant]
     Indication: PNEUMONIA CRYPTOCOCCAL
     Route: 065
     Dates: start: 20120403
  7. AMBISOME [Concomitant]
     Indication: PNEUMONIA CRYPTOCOCCAL
     Route: 065
     Dates: start: 20120326, end: 20120402
  8. ANCOTIL [Concomitant]
     Indication: PNEUMONIA CRYPTOCOCCAL
     Route: 048
     Dates: start: 20120326, end: 20120402

REACTIONS (2)
  - Hyperphosphatasaemia [Not Recovered/Not Resolved]
  - Hypertriglyceridaemia [Not Recovered/Not Resolved]
